FAERS Safety Report 9204577 (Version 2)
Quarter: 2013Q4

REPORT INFORMATION
  Report Type: Report from Study
  Country: JP (occurrence: JP)
  Receive Date: 20130402
  Receipt Date: 20131217
  Transmission Date: 20140711
  Serious: Yes (Hospitalization)
  Sender: FDA-Public Use
  Company Number: JP-JNJFOC-20130318664

PATIENT
  Age: 52 Year
  Sex: Female
  Weight: 47 kg

DRUGS (23)
  1. SIMPONI [Suspect]
     Indication: RHEUMATOID ARTHRITIS
     Route: 058
     Dates: start: 20120717
  2. SIMPONI [Suspect]
     Indication: RHEUMATOID ARTHRITIS
     Route: 058
     Dates: start: 20120619
  3. SIMPONI [Suspect]
     Indication: RHEUMATOID ARTHRITIS
     Route: 058
     Dates: start: 20120522
  4. SIMPONI [Suspect]
     Indication: RHEUMATOID ARTHRITIS
     Route: 058
     Dates: start: 20121127
  5. SIMPONI [Suspect]
     Indication: RHEUMATOID ARTHRITIS
     Route: 058
     Dates: start: 20120828
  6. SIMPONI [Suspect]
     Indication: RHEUMATOID ARTHRITIS
     Route: 058
     Dates: start: 20120925
  7. SIMPONI [Suspect]
     Indication: RHEUMATOID ARTHRITIS
     Route: 058
     Dates: start: 20121030
  8. PREDNISOLONE [Suspect]
     Indication: RHEUMATOID ARTHRITIS
     Route: 048
     Dates: start: 20120403, end: 20120717
  9. PREDNISOLONE [Suspect]
     Indication: RHEUMATOID ARTHRITIS
     Route: 048
     Dates: start: 20110809, end: 20120402
  10. PREDNISOLONE [Suspect]
     Indication: RHEUMATOID ARTHRITIS
     Route: 048
     Dates: start: 20120718, end: 20120828
  11. PREDNISOLONE [Suspect]
     Indication: RHEUMATOID ARTHRITIS
     Route: 048
     Dates: start: 20120829, end: 20121002
  12. METHOTREXATE [Concomitant]
     Indication: RHEUMATOID ARTHRITIS
  13. CELECOX [Concomitant]
     Indication: RHEUMATOID ARTHRITIS
     Route: 048
  14. BONOTEO [Concomitant]
     Indication: PROPHYLAXIS
     Route: 048
  15. AMLODIPINE [Concomitant]
     Indication: HYPERTENSION
     Route: 048
  16. ALOSITOL [Concomitant]
     Indication: HYPERURICAEMIA
     Route: 048
  17. ALFAROL [Concomitant]
     Indication: PROPHYLAXIS
     Route: 048
  18. EPLERENONE [Concomitant]
     Indication: HYPERTENSION
     Route: 048
  19. PARIET [Concomitant]
     Indication: PROPHYLAXIS
     Route: 048
  20. FOLIAMIN [Concomitant]
     Indication: PROPHYLAXIS
  21. REBAMIPIDE [Concomitant]
     Indication: PROPHYLAXIS
  22. VIVIANT [Concomitant]
     Indication: PROPHYLAXIS
     Route: 048
  23. BAKTAR [Concomitant]
     Indication: PROPHYLAXIS
     Route: 048

REACTIONS (2)
  - Pyelonephritis [Recovered/Resolved]
  - Calculus ureteric [Recovered/Resolved]
